FAERS Safety Report 26016351 (Version 1)
Quarter: 2025Q4

REPORT INFORMATION
  Report Type: Report from Study
  Country: CA (occurrence: CA)
  Receive Date: 20251110
  Receipt Date: 20251110
  Transmission Date: 20260117
  Serious: Yes (Death, Other)
  Sender: TOLMAR
  Company Number: TLM-2025-01840(0), TLM-2025-01840 (1)

PATIENT
  Age: 73 Year
  Sex: Male

DRUGS (5)
  1. ELIGARD [Suspect]
     Active Substance: LEUPROLIDE ACETATE
     Indication: Prostate cancer
     Dosage: 45 MG,EVERY 6 MONTHS
     Route: 058
     Dates: start: 20250423
  2. ELIGARD [Suspect]
     Active Substance: LEUPROLIDE ACETATE
     Dosage: 45 MG EVERY 6 MONTHS
     Route: 058
     Dates: start: 20230831
  3. ELIGARD [Suspect]
     Active Substance: LEUPROLIDE ACETATE
     Dosage: 45 MG ,EVERY 6 MONTHS
     Route: 058
     Dates: start: 20240424
  4. ELIGARD [Suspect]
     Active Substance: LEUPROLIDE ACETATE
     Indication: Prostate cancer
     Dosage: 22.5 MG,EVERY 3 MONTHS
     Route: 058
     Dates: start: 20240122
  5. ELIGARD [Suspect]
     Active Substance: LEUPROLIDE ACETATE
     Indication: Prostate cancer

REACTIONS (1)
  - Death [Fatal]
